FAERS Safety Report 12398390 (Version 1)
Quarter: 2016Q2

REPORT INFORMATION
  Report Type: Spontaneous
  Country: NL (occurrence: NL)
  Receive Date: 20160524
  Receipt Date: 20160524
  Transmission Date: 20160815
  Serious: Yes (Other)
  Sender: FDA-Public Use
  Company Number: NL-CORDEN PHARMA LATINA S.P.A.-NL-2016COR000149

PATIENT
  Age: 16 Month
  Sex: Female

DRUGS (15)
  1. IFOSFAMIDE. [Suspect]
     Active Substance: IFOSFAMIDE
     Indication: METASTASES TO LUNG
  2. ETOPOSIDE. [Suspect]
     Active Substance: ETOPOSIDE
     Indication: METASTASES TO LUNG
  3. CISPLATIN. [Suspect]
     Active Substance: CISPLATIN
     Indication: METASTASIS
  4. VINBLASTINE [Suspect]
     Active Substance: VINBLASTINE
     Indication: METASTASES TO LUNG
  5. CISPLATIN. [Suspect]
     Active Substance: CISPLATIN
     Indication: OVARIAN EMBRYONAL CARCINOMA
     Dosage: UNK
     Dates: start: 1991
  6. BLEOMYCIN [Suspect]
     Active Substance: BLEOMYCIN SULFATE
     Indication: METASTASIS
  7. ETOPOSIDE. [Suspect]
     Active Substance: ETOPOSIDE
     Indication: METASTASIS
  8. BLEOMYCIN [Suspect]
     Active Substance: BLEOMYCIN SULFATE
     Indication: OVARIAN EMBRYONAL CARCINOMA
     Dosage: UNK
     Dates: start: 1991
  9. IFOSFAMIDE. [Suspect]
     Active Substance: IFOSFAMIDE
     Indication: OVARIAN EMBRYONAL CARCINOMA
     Dosage: UNK
     Dates: start: 1991
  10. VINBLASTINE [Suspect]
     Active Substance: VINBLASTINE
     Indication: OVARIAN EMBRYONAL CARCINOMA
     Dosage: UNK
     Dates: start: 1991
  11. VINBLASTINE [Suspect]
     Active Substance: VINBLASTINE
     Indication: METASTASIS
  12. ETOPOSIDE. [Suspect]
     Active Substance: ETOPOSIDE
     Indication: OVARIAN EMBRYONAL CARCINOMA
     Dosage: UNK
     Dates: start: 1991
  13. BLEOMYCIN [Suspect]
     Active Substance: BLEOMYCIN SULFATE
     Indication: METASTASES TO LUNG
  14. IFOSFAMIDE. [Suspect]
     Active Substance: IFOSFAMIDE
     Indication: METASTASIS
  15. CISPLATIN. [Suspect]
     Active Substance: CISPLATIN
     Indication: METASTASES TO LUNG

REACTIONS (5)
  - Deafness [Unknown]
  - Dilatation ventricular [Unknown]
  - Paraplegia [Unknown]
  - Bundle branch block left [Unknown]
  - Scoliosis [Unknown]
